FAERS Safety Report 9621122 (Version 3)
Quarter: 2013Q4

REPORT INFORMATION
  Report Type: Report from Study
  Country: CA (occurrence: CA)
  Receive Date: 20131015
  Receipt Date: 20131021
  Transmission Date: 20140711
  Serious: Yes (Other)
  Sender: FDA-Public Use
  Company Number: CA-US-EMD SERONO, INC.-7226527

PATIENT
  Age: 41 Year
  Sex: Female

DRUGS (2)
  1. REBIF [Suspect]
     Indication: RELAPSING-REMITTING MULTIPLE SCLEROSIS
     Route: 058
     Dates: start: 20130311
  2. REBIF [Suspect]
     Route: 058
     Dates: start: 201309, end: 20131011

REACTIONS (3)
  - Systemic lupus erythematosus [Unknown]
  - Influenza like illness [Recovering/Resolving]
  - Headache [Recovering/Resolving]
